FAERS Safety Report 22229045 (Version 1)
Quarter: 2023Q2

REPORT INFORMATION
  Report Type: Spontaneous
  Country: AU (occurrence: AU)
  Receive Date: 20230419
  Receipt Date: 20230419
  Transmission Date: 20230721
  Serious: Yes (Hospitalization, Other)
  Sender: FDA-Public Use
  Company Number: AU-AMGEN-AUSSP2023062114

PATIENT
  Age: 67 Year
  Sex: Male

DRUGS (3)
  1. REPATHA [Suspect]
     Active Substance: EVOLOCUMAB
     Indication: Blood cholesterol increased
     Dosage: 140 MILLIGRAM, 2 X MONTHS (ONE YEAR)
     Route: 065
  2. REPATHA [Suspect]
     Active Substance: EVOLOCUMAB
     Indication: Stent placement
  3. REPATHA [Suspect]
     Active Substance: EVOLOCUMAB
     Indication: Cardiac disorder

REACTIONS (13)
  - Blindness [Unknown]
  - Diabetes mellitus [Unknown]
  - Hypertension [Unknown]
  - Muscular weakness [Unknown]
  - Weight decreased [Unknown]
  - Hypoaesthesia [Unknown]
  - Muscular weakness [Unknown]
  - Anxiety [Unknown]
  - Apathy [Unknown]
  - Thinking abnormal [Unknown]
  - Dizziness [Unknown]
  - Back pain [Unknown]
  - Arthralgia [Unknown]
